FAERS Safety Report 5175151-7 (Version None)
Quarter: 2006Q4

REPORT INFORMATION
  Report Type: 
  Country: None (occurrence: None)
  Receive Date: 20061206
  Receipt Date: 20061123
  Transmission Date: 20070319
  Serious: Yes (Other)
  Sender: FDA-Public Use
  Company Number: SP-2006-003357

PATIENT
  Age: 46 Year
  Sex: Male
  Weight: 115 kg

DRUGS (1)
  1. OLMESARTAN MEDOXOMIL [Suspect]
     Indication: ESSENTIAL HYPERTENSION
     Dosage: 10 MG QD PO
     Route: 048
     Dates: start: 20061003, end: 20061023

REACTIONS (2)
  - DIZZINESS [None]
  - VISION BLURRED [None]
